FAERS Safety Report 15905937 (Version 5)
Quarter: 2020Q1

REPORT INFORMATION
  Report Type: Report from Study
  Country: BE (occurrence: BE)
  Receive Date: 20190204
  Receipt Date: 20200115
  Transmission Date: 20200409
  Serious: Yes (Other)
  Sender: FDA-Public Use
  Company Number: BE-MYLANLABS-2018M1028326

PATIENT
  Age: 70 Year
  Sex: Female
  Weight: 61.5 kg

DRUGS (21)
  1. DAFALGAN [Concomitant]
     Active Substance: ACETAMINOPHEN
     Dosage: AS NEEDED
     Route: 065
     Dates: start: 20180131
  2. PACLITAXEL. [Suspect]
     Active Substance: PACLITAXEL
     Indication: OVARIAN CANCER
     Dosage: 1 DF, QW
     Route: 042
  3. AVASTIN [Suspect]
     Active Substance: BEVACIZUMAB
     Dosage: 1027 MILLIGRAM, Q3W
     Route: 042
     Dates: start: 20180712
  4. CLEEN [Concomitant]
     Dosage: UNK
     Route: 065
     Dates: start: 20180206, end: 20180206
  5. NORGALAX                           /00061602/ [Concomitant]
     Indication: CONSTIPATION
     Dosage: UNK
     Route: 065
     Dates: start: 20180212, end: 20180212
  6. AVASTIN [Suspect]
     Active Substance: BEVACIZUMAB
     Dosage: 960 MILLIGRAM, Q3W
     Route: 042
     Dates: start: 20171102
  7. PARACETAMOL [Concomitant]
     Active Substance: ACETAMINOPHEN
     Dosage: 1 GRAM
     Route: 042
     Dates: start: 20180208, end: 20180210
  8. AVASTIN [Suspect]
     Active Substance: BEVACIZUMAB
     Dosage: 975 MILLIGRAM
     Route: 042
     Dates: start: 20171123
  9. CARBOPLATIN. [Suspect]
     Active Substance: CARBOPLATIN
     Indication: OVARIAN CANCER
     Dosage: 1 DF, Q3W,DOSE: 6 AUC
     Route: 042
     Dates: start: 20171102, end: 20180329
  10. TEMESTA EXPIDET [Concomitant]
     Active Substance: LORAZEPAM
     Indication: INSOMNIA
     Dosage: 1 MILLIGRAM, QD
     Route: 065
     Dates: start: 20180207, end: 20180208
  11. ACLASTA [Concomitant]
     Active Substance: ZOLEDRONIC ACID
     Indication: BACK PAIN
     Dosage: 5 MILLIGRAM Q6 MONTH
     Route: 042
     Dates: start: 20180621
  12. MOVICOL [Concomitant]
     Active Substance: POLYETHYLENE GLYCOL 3350\POTASSIUM CHLORIDE\SODIUM BICARBONATE\SODIUM CHLORIDE
     Dosage: UNK
     Route: 065
     Dates: start: 20180211
  13. PACLITAXEL. [Suspect]
     Active Substance: PACLITAXEL
     Dosage: 133.6 MILLIGRAM/SQ. METER, QW
     Route: 042
     Dates: start: 20171123, end: 20180412
  14. AVASTIN [Suspect]
     Active Substance: BEVACIZUMAB
     Indication: OVARIAN CANCER
     Dosage: 1 DF, Q3W
     Route: 042
     Dates: start: 20171102
  15. BEFACT                             /01525301/ [Concomitant]
     Dosage: UNK
     Route: 065
     Dates: start: 20180211, end: 20180831
  16. FRAXIPARINE [Concomitant]
     Active Substance: NADROPARIN CALCIUM
     Dosage: 0.3 MILLILITER
     Route: 058
     Dates: start: 20180208, end: 20180226
  17. PACLITAXEL. [Suspect]
     Active Substance: PACLITAXEL
     Dosage: 132 MILLIGRAM/SQ. METER, QW
     Route: 042
     Dates: start: 20171102
  18. VOLTAREN [Concomitant]
     Active Substance: DICLOFENAC SODIUM
     Dosage: 50 MILLIGRAM, QD
     Route: 048
     Dates: start: 20171109
  19. PANTOMED                           /01263204/ [Concomitant]
     Active Substance: PANTOPRAZOLE SODIUM
     Dosage: 40 MILLIGRAM, QD
     Route: 065
     Dates: start: 20180209, end: 20180210
  20. XANAX [Concomitant]
     Active Substance: ALPRAZOLAM
     Indication: ANXIETY
     Dosage: 0.5 MILLIGRAM, QD
     Route: 065
     Dates: start: 20180206, end: 20180226
  21. TRAMADOL HYDROCHLORIDE. [Concomitant]
     Active Substance: TRAMADOL HYDROCHLORIDE
     Dosage: 50 MILLIGRAM, QD
     Route: 065
     Dates: start: 20180209, end: 20180209

REACTIONS (19)
  - Suspected transmission of an infectious agent via product [Unknown]
  - Bursitis [Unknown]
  - Oedema peripheral [Recovered/Resolved]
  - Rash [Unknown]
  - Nausea [Unknown]
  - Neuropathy peripheral [Not Recovered/Not Resolved]
  - Ecchymosis [Recovered/Resolved]
  - Back pain [Not Recovered/Not Resolved]
  - Chest pain [Not Recovered/Not Resolved]
  - Anal pruritus [Recovered/Resolved]
  - Musculoskeletal pain [Unknown]
  - Toothache [Unknown]
  - Hypertension [Not Recovered/Not Resolved]
  - Fall [Unknown]
  - Abdominal pain [Recovered/Resolved]
  - Aphthous ulcer [Recovered/Resolved]
  - Fatigue [Recovered/Resolved]
  - Abdominal wound dehiscence [Recovered/Resolved]
  - Anorectal discomfort [Unknown]

NARRATIVE: CASE EVENT DATE: 20171102
